FAERS Safety Report 6564833-8 (Version None)
Quarter: 2010Q1

REPORT INFORMATION
  Report Type: 
  Country: None (occurrence: None)
  Receive Date: 20100201
  Receipt Date: 20100121
  Transmission Date: 20100710
  Serious: Yes (Hospitalization)
  Sender: FDA-Public Use
  Company Number: DE-PFIZER INC-2010008465

PATIENT
  Age: 41 Year
  Sex: Male
  Weight: 89 kg

DRUGS (6)
  1. PEGVISOMANT [Suspect]
     Indication: ACROMEGALY
     Dosage: 35 MG, 1X/DAY
     Dates: start: 20090116
  2. THYRONAJOD [Concomitant]
  3. TESTOSTERONE [Concomitant]
  4. HYDROCORTISONE [Concomitant]
  5. ATACAND HCT [Concomitant]
  6. AMLODIPINE [Concomitant]

REACTIONS (1)
  - NEOPLASM RECURRENCE [None]
